FAERS Safety Report 5232751-3 (Version None)
Quarter: 2007Q1

REPORT INFORMATION
  Report Type: 
  Country: None (occurrence: None)
  Receive Date: 20070206
  Receipt Date: 20070206
  Transmission Date: 20070707
  Serious: No
  Sender: FDA-Public Use
  Company Number: None

PATIENT
  Sex: Female
  Weight: 54.5 kg

DRUGS (17)
  1. GADOLINIUM [Suspect]
     Indication: NUCLEAR MAGNETIC RESONANCE IMAGING
     Dosage: VOLUME UNKNOWN -WAS FOR MRI -  ONCE   IV BOLUS
     Route: 040
     Dates: start: 20061013, end: 20061013
  2. GADOLINIUM [Suspect]
     Indication: RENAL ARTERY STENOSIS
     Dosage: VOLUME UNKNOWN -WAS FOR MRI -  ONCE   IV BOLUS
     Route: 040
     Dates: start: 20061013, end: 20061013
  3. NORVASC [Concomitant]
  4. SYNTHROID [Concomitant]
  5. NEXIUM [Concomitant]
  6. CALCITRIOL [Concomitant]
  7. ZETIA [Concomitant]
  8. IRON SULFATETHIAMIN COMPOUND TAB [Concomitant]
  9. HYDRALAZINE HCL [Concomitant]
  10. PREDNISONE [Concomitant]
  11. LASIX [Concomitant]
  12. FOSAMAX [Concomitant]
  13. KEFLEX [Concomitant]
  14. COREG [Concomitant]
  15. HYDROCHLOROTHIAZIDE [Concomitant]
  16. ATACAND [Concomitant]
  17. DIOVAN [Concomitant]

REACTIONS (1)
  - NEPHROGENIC FIBROSING DERMOPATHY [None]
